FAERS Safety Report 4621843-5 (Version None)
Quarter: 2005Q1

REPORT INFORMATION
  Report Type: 
  Country: None (occurrence: None)
  Receive Date: 20050329
  Receipt Date: 20050317
  Transmission Date: 20050727
  Serious: Yes (Hospitalization)
  Sender: FDA-Public Use
  Company Number: FR-SANOFI-SYNTHELABO-A02200500767

PATIENT
  Age: 82 Year
  Sex: Male

DRUGS (11)
  1. KARDEGIC [Suspect]
     Route: 048
     Dates: end: 20050208
  2. ZOLPIDEM TARTRATE [Suspect]
     Dosage: UNK
     Route: 048
     Dates: end: 20050218
  3. NITROGLYCERIN [Suspect]
     Dosage: UNK
     Route: 061
  4. AMOXICILLIN [Suspect]
     Dosage: UNK
     Route: 048
     Dates: start: 20050202, end: 20050208
  5. ZOCOR [Suspect]
     Dosage: UNK
     Route: 048
     Dates: end: 20050218
  6. PRAXINOR [Suspect]
     Route: 048
     Dates: end: 20050218
  7. TRUSOPT [Suspect]
     Dosage: UNK
     Route: 047
  8. PHOSPHALUGEL [Suspect]
     Dosage: UNK
     Route: 048
     Dates: end: 20050218
  9. TRIFLUCAN [Suspect]
     Indication: BRONCHITIS
     Dosage: UNK
     Route: 065
     Dates: start: 20050128, end: 20050201
  10. RIFAMYCINE [Suspect]
     Dosage: UNK
     Route: 047
     Dates: start: 20050202, end: 20050208
  11. PARACETAMOL [Suspect]
     Dosage: UNK
     Route: 065

REACTIONS (2)
  - EPISTAXIS [None]
  - THROMBOCYTOPENIC PURPURA [None]
